FAERS Safety Report 8284077-1 (Version None)
Quarter: 2012Q2

REPORT INFORMATION
  Report Type: 
  Country: None (occurrence: None)
  Receive Date: 20120413
  Receipt Date: 20110711
  Transmission Date: 20120825
  Serious: Yes (Hospitalization)
  Sender: FDA-Public Use
  Company Number: US-ASTRAZENECA-2011SE41554

PATIENT
  Age: 44 Year
  Sex: Female

DRUGS (1)
  1. NEXIUM [Suspect]
     Dosage: ONCE A DAY
     Route: 048
     Dates: start: 20030101

REACTIONS (3)
  - FIBULA FRACTURE [None]
  - ANKLE FRACTURE [None]
  - SPINAL DISORDER [None]
